FAERS Safety Report 26200592 (Version 1)
Quarter: 2025Q4

REPORT INFORMATION
  Report Type: Spontaneous
  Country: EU (occurrence: EU)
  Receive Date: 20251225
  Receipt Date: 20251225
  Transmission Date: 20260119
  Serious: Yes (Other)
  Sender: Harrow Health
  Company Number: EU-Novartis Pharma-NVSC2025DE190662

PATIENT
  Age: 86 Year
  Sex: Male

DRUGS (2)
  1. NEVANAC [Suspect]
     Active Substance: NEPAFENAC
     Indication: Macular degeneration
     Dosage: 1 MILLIGRAM PER MILLILITRE, BID
     Route: 065
     Dates: start: 202502, end: 202511
  2. EYLEA [Concomitant]
     Active Substance: AFLIBERCEPT
     Indication: Macular degeneration

REACTIONS (7)
  - Keratoconus [Not Recovered/Not Resolved]
  - Visual acuity reduced [Not Recovered/Not Resolved]
  - Visual impairment [Not Recovered/Not Resolved]
  - Vision blurred [Not Recovered/Not Resolved]
  - Delayed light adaptation [Not Recovered/Not Resolved]
  - Delayed dark adaptation [Not Recovered/Not Resolved]
  - Product use in unapproved indication [Unknown]

NARRATIVE: CASE EVENT DATE: 20250101
